FAERS Safety Report 5167698-4 (Version None)
Quarter: 2006Q4

REPORT INFORMATION
  Report Type: 
  Country: None (occurrence: None)
  Receive Date: 20061201
  Receipt Date: 20061201
  Transmission Date: 20070319
  Serious: Yes (Death)
  Sender: FDA-Public Use
  Company Number: None

PATIENT
  Age: 65 Year
  Sex: Female
  Weight: 110 kg

DRUGS (10)
  1. LOVENOX [Suspect]
     Indication: ATRIAL FIBRILLATION
     Dosage: 110 MG Q12HR SQ
     Route: 058
     Dates: start: 20061118, end: 20061124
  2. MAGNESIUM OXIDE [Concomitant]
  3. LOSARTAN POTASSIUM [Concomitant]
  4. SULINDAC [Concomitant]
  5. AMLODIPINE [Concomitant]
  6. FUROSEMIDE [Concomitant]
  7. GLYBURIDE [Concomitant]
  8. CODEINE/APAP [Concomitant]
  9. NOVOLOG [Concomitant]
  10. VANCOMYCIN [Concomitant]

REACTIONS (5)
  - BRAIN HERNIATION [None]
  - COMPUTERISED TOMOGRAM ABNORMAL [None]
  - HAEMORRHAGE INTRACRANIAL [None]
  - MENTAL STATUS CHANGES [None]
  - MOVEMENT DISORDER [None]
